FAERS Safety Report 25762583 (Version 1)
Quarter: 2025Q3

REPORT INFORMATION
  Report Type: Spontaneous
  Country: CA (occurrence: CA)
  Receive Date: 20250904
  Receipt Date: 20250904
  Transmission Date: 20251021
  Serious: Yes (Death, Hospitalization)
  Sender: MERCK SHARP & DOHME LLC
  Company Number: CA-009507513-2325710

PATIENT
  Age: 61 Year
  Sex: Male
  Weight: 45 kg

DRUGS (1)
  1. DELSTRIGO [Suspect]
     Active Substance: DORAVIRINE\LAMIVUDINE\TENOFOVIR DISOPROXIL FUMARATE
     Dosage: THERAPY DURATION: 3.0 YEARS
     Route: 065

REACTIONS (2)
  - Blood creatinine increased [Fatal]
  - Renal impairment [Fatal]
